FAERS Safety Report 12346040 (Version 1)
Quarter: 2016Q2

REPORT INFORMATION
  Report Type: Spontaneous
  Country: US (occurrence: US)
  Receive Date: 20160509
  Receipt Date: 20160509
  Transmission Date: 20160815
  Serious: No
  Sender: FDA-Public Use
  Company Number: US-BAYER-2016-083284

PATIENT
  Age: 90 Year
  Sex: Male
  Weight: 74.83 kg

DRUGS (1)
  1. MIRALAX [Suspect]
     Active Substance: POLYETHYLENE GLYCOL 3350
     Dosage: ONE DOSE
     Route: 048
     Dates: start: 2015

REACTIONS (3)
  - Gastrointestinal motility disorder [Not Recovered/Not Resolved]
  - Gastrointestinal motility disorder [None]
  - Product use issue [None]

NARRATIVE: CASE EVENT DATE: 20160427
